FAERS Safety Report 23757090 (Version 3)
Quarter: 2024Q2

REPORT INFORMATION
  Report Type: Spontaneous
  Country: US (occurrence: US)
  Receive Date: 20240418
  Receipt Date: 20240603
  Transmission Date: 20240716
  Serious: Yes (Death)
  Sender: FDA-Public Use
  Company Number: US-PFIZER INC-PV202400050696

PATIENT
  Sex: Female

DRUGS (1)
  1. XALKORI [Suspect]
     Active Substance: CRIZOTINIB
     Dosage: UNK
     Dates: start: 20220819, end: 20230201

REACTIONS (11)
  - Neoplasm progression [Fatal]
  - Rash [Unknown]
  - Pain [Unknown]
  - Oedema peripheral [Unknown]
  - Swelling face [Unknown]
  - Eyelid oedema [Unknown]
  - Visual impairment [Unknown]
  - Dysgeusia [Unknown]
  - Nausea [Unknown]
  - Vomiting [Unknown]
  - Diarrhoea [Unknown]
